FAERS Safety Report 5614853-2 (Version None)
Quarter: 2008Q1

REPORT INFORMATION
  Report Type: 
  Country: None (occurrence: None)
  Receive Date: 20080131
  Receipt Date: 20080122
  Transmission Date: 20080703
  Serious: Yes (Life-Threatening, Hospitalization)
  Sender: FDA-Public Use
  Company Number: OSCN-NO-0608S-0214

PATIENT
  Age: 63 Year
  Sex: Male

DRUGS (11)
  1. OMNISCAN [Suspect]
     Indication: DRUG USE FOR UNKNOWN INDICATION
     Dosage: I.V.
     Route: 042
     Dates: start: 20040101, end: 20040101
  2. EXTRANEAL [Concomitant]
  3. NORVASC [Concomitant]
  4. METOPROLOL (SELO-ZOK) [Concomitant]
  5. NEXIUM [Concomitant]
  6. ALFACALCIDOL (ETALPHA) [Concomitant]
  7. ACETAMINOPHEN [Concomitant]
  8. ACETYLCYSTEINE [Concomitant]
  9. VITAMIN B COMPLEX (B-KOMBIN STERK) [Concomitant]
  10. HYPERTONIC SOLUTIONS (PHYSIONEAL 40 GLUCOSE CLEAR-F [Concomitant]
  11. FOLIC ACID [Concomitant]

REACTIONS (4)
  - CARDIOVASCULAR INSUFFICIENCY [None]
  - GAIT DISTURBANCE [None]
  - HYPOTENSION [None]
  - WEIGHT DECREASED [None]
